FAERS Safety Report 25651387 (Version 3)
Quarter: 2025Q4

REPORT INFORMATION
  Report Type: Spontaneous
  Country: US (occurrence: US)
  Receive Date: 20250806
  Receipt Date: 20251010
  Transmission Date: 20260119
  Serious: Yes (Other)
  Sender: TEVA
  Company Number: US-TEVA-VS-3358639

PATIENT
  Age: 38 Year
  Sex: Female

DRUGS (10)
  1. ACETAMINOPHEN\BUTALBITAL\CAFFEINE [Suspect]
     Active Substance: ACETAMINOPHEN\BUTALBITAL\CAFFEINE
     Indication: Migraine
     Dosage: TIME INTERVAL: AS NECESSARY: FIORICET
     Route: 065
  2. BENADRYL [Suspect]
     Active Substance: DIPHENHYDRAMINE HYDROCHLORIDE
     Indication: Migraine
     Dosage: TIME INTERVAL: AS NECESSARY
     Route: 065
  3. ZOFRAN [Suspect]
     Active Substance: ONDANSETRON HYDROCHLORIDE
     Indication: Migraine
     Dosage: TIME INTERVAL: AS NECESSARY
     Route: 065
  4. FENTANYL [Suspect]
     Active Substance: FENTANYL
     Indication: Migraine
     Dosage: TIME INTERVAL: AS NECESSARY
     Route: 065
  5. TYLENOL [Suspect]
     Active Substance: ACETAMINOPHEN
     Indication: Migraine
     Dosage: TIME INTERVAL: AS NECESSARY: 2600-3900 MG
     Route: 048
  6. TYLENOL [Suspect]
     Active Substance: ACETAMINOPHEN
     Indication: Migraine
     Dosage: TIME INTERVAL: AS NECESSARY
     Route: 048
  7. TRAMADOL [Suspect]
     Active Substance: TRAMADOL
     Indication: Migraine
     Dosage: TIME INTERVAL: AS NECESSARY
     Route: 048
     Dates: start: 202411
  8. RELPAX [Suspect]
     Active Substance: ELETRIPTAN HYDROBROMIDE
     Indication: Migraine
     Dosage: TIME INTERVAL: AS NECESSARY
     Route: 048
     Dates: start: 2013
  9. EXCEDRIN [Suspect]
     Active Substance: ACETAMINOPHEN\ASPIRIN\CAFFEINE
     Indication: Migraine
     Dosage: TIME INTERVAL: AS NECESSARY: 1-4 DOSE FORMS
     Route: 048
  10. NURTEC ODT [Suspect]
     Active Substance: RIMEGEPANT SULFATE
     Indication: Migraine
     Dosage: TIME INTERVAL: AS NECESSARY
     Route: 048
     Dates: start: 202406

REACTIONS (3)
  - Premature delivery [Unknown]
  - Maternal exposure timing unspecified [Unknown]
  - Live birth [Unknown]

NARRATIVE: CASE EVENT DATE: 20250505
